FAERS Safety Report 8614517-7 (Version None)
Quarter: 2012Q3

REPORT INFORMATION
  Report Type: 
  Country: None (occurrence: None)
  Receive Date: 20120823
  Receipt Date: 20120821
  Transmission Date: 20120928
  Serious: Yes (Death, Hospitalization)
  Sender: FDA-Public Use
  Company Number: PHHY2012AR072425

PATIENT

DRUGS (1)
  1. EXELON [Suspect]
     Indication: DEMENTIA ALZHEIMER'S TYPE
     Dosage: UNK
     Route: 062
     Dates: start: 20120501, end: 20120715

REACTIONS (3)
  - FEELING ABNORMAL [None]
  - CARDIO-RESPIRATORY ARREST [None]
  - CHEST PAIN [None]
